FAERS Safety Report 5298810-4 (Version None)
Quarter: 2007Q1

REPORT INFORMATION
  Report Type: 
  Country: None (occurrence: None)
  Receive Date: 20070201
  Receipt Date: 20061027
  Transmission Date: 20070707
  Serious: No
  Sender: FDA-Public Use
  Company Number: 2006PV024124

PATIENT
  Age: 75 Year
  Sex: Female
  Weight: 90.7194 kg

DRUGS (6)
  1. BYETTA [Suspect]
     Indication: DIABETES MELLITUS NON-INSULIN-DEPENDENT
     Dosage: 5 MCG; BID; SC
     Route: 058
     Dates: start: 20061001
  2. HUMALOG [Concomitant]
  3. LANTUS [Concomitant]
  4. AMARYL [Concomitant]
  5. METFORMIN HCL [Concomitant]
  6. CORTISONE ACETATE [Concomitant]

REACTIONS (6)
  - DECREASED APPETITE [None]
  - DRUG INEFFECTIVE [None]
  - GASTROOESOPHAGEAL REFLUX DISEASE [None]
  - NAUSEA [None]
  - VOMITING [None]
  - WEIGHT DECREASED [None]
